FAERS Safety Report 8784288 (Version 5)
Quarter: 2013Q2

REPORT INFORMATION
  Report Type: Report from Study
  Country: JP (occurrence: JP)
  Receive Date: 20120913
  Receipt Date: 20130529
  Transmission Date: 20140414
  Serious: Yes (Hospitalization, Other)
  Sender: FDA-Public Use
  Company Number: JP-VERTEX PHARMACEUTICAL INC.-2012-020873

PATIENT
  Age: 70 Year
  Sex: Male

DRUGS (17)
  1. VX-950 (TELAPREVIR) [Suspect]
     Indication: CHRONIC HEPATITIS C
     Dosage: 1500 MG, QD
     Route: 048
     Dates: start: 20120818, end: 20120831
  2. VX-950 (TELAPREVIR) [Suspect]
     Dosage: 1000 MG, QD
     Route: 048
     Dates: start: 20120905, end: 20120912
  3. REBETOL [Suspect]
     Indication: CHRONIC HEPATITIS C
     Dosage: 600 MG, QD
     Route: 048
     Dates: start: 20120818, end: 20120831
  4. REBETOL [Suspect]
     Dosage: 400 MG, QD
     Route: 048
     Dates: start: 20120905, end: 20120912
  5. PEGINTRON [Suspect]
     Indication: CHRONIC HEPATITIS C
     Dosage: 1.5 ?G/KG, QW
     Route: 058
     Dates: start: 20120818, end: 20120906
  6. URSO [Concomitant]
     Dosage: 3 DF, QD
     Route: 048
  7. PENTASA [Concomitant]
     Dosage: 6 DF, QD
     Route: 048
  8. TSUMURA CHOREITO [Concomitant]
     Dosage: 2.5 G, QD
     Route: 048
  9. AMLODIN OD [Concomitant]
     Dosage: 1 DF, QD
     Route: 048
  10. ALLEGRA [Concomitant]
     Dosage: 2 DF, QD
     Route: 048
  11. ALDACTONE A [Concomitant]
     Dosage: 1 DF, QD
     Route: 048
  12. GASTER D [Concomitant]
     Dosage: 1 DF, QD
     Route: 048
  13. PARIET [Concomitant]
     Dosage: 1 DF, QD
     Route: 048
     Dates: start: 20120901
  14. LASIX [Concomitant]
     Dosage: 40-60 MG/ QD
     Route: 048
     Dates: start: 20120927
  15. LASIX [Concomitant]
     Dosage: 1 DF, QD
     Route: 048
  16. LIVACT [Concomitant]
     Dosage: 3 DF, QD
     Route: 048
     Dates: start: 20130110
  17. PRIMPERAN [Concomitant]
     Dosage: 1 DF, PRN
     Route: 048
     Dates: start: 20120825, end: 20120827

REACTIONS (8)
  - Hepatic encephalopathy [Recovered/Resolved]
  - Rhabdomyolysis [Recovered/Resolved]
  - Ascites [Unknown]
  - Ascites [Not Recovered/Not Resolved]
  - Oedema [Not Recovered/Not Resolved]
  - Renal impairment [Recovered/Resolved]
  - Rash papular [Recovered/Resolved]
  - Hepatic cancer recurrent [Unknown]
